FAERS Safety Report 24765631 (Version 1)
Quarter: 2024Q4

REPORT INFORMATION
  Report Type: Spontaneous
  Country: US (occurrence: None)
  Receive Date: 20241221
  Receipt Date: 20241221
  Transmission Date: 20250115
  Serious: Yes (Life-Threatening)
  Sender: Public
  Company Number: None

PATIENT
  Age: 72 Year
  Sex: Female

DRUGS (1)
  1. IBRANCE [Suspect]
     Active Substance: PALBOCICLIB
     Indication: Product used for unknown indication
     Dosage: 125MG 1 QD ORAL
     Route: 048
     Dates: start: 20241213

REACTIONS (5)
  - Muscle tightness [None]
  - Dysphagia [None]
  - Mastication disorder [None]
  - Dyspnoea [None]
  - Hallucination [None]
